FAERS Safety Report 6030746-3 (Version None)
Quarter: 2009Q1

REPORT INFORMATION
  Report Type: 
  Country: None (occurrence: None)
  Receive Date: 20090106
  Receipt Date: 20081226
  Transmission Date: 20090719
  Serious: Yes (Hospitalization)
  Sender: FDA-Public Use
  Company Number: TCI2008A03546

PATIENT
  Age: 74 Year
  Sex: Male
  Weight: 57.4 kg

DRUGS (10)
  1. LANSAP 400 (LANSOPRAZOLE, CLARITHROMYCIN, AMOXICILLIN) (PREPARATION FO [Suspect]
     Indication: HELICOBACTER INFECTION
     Dosage: 1 CARD (0.5 CARDS,2 IN 1 D)
     Route: 048
     Dates: start: 20080104, end: 20080108
  2. LANSAP 400 (LANSOPRAZOLE, CLARITHROMYCIN, AMOXICILLIN) (PREPARATION FO [Suspect]
     Indication: HELICOBACTER INFECTION
     Dosage: 1 CARD (0.5 CARDS,2 IN 1 D)
     Route: 048
     Dates: start: 20080110, end: 20080111
  3. GLYBURIDE [Suspect]
     Indication: TYPE 2 DIABETES MELLITUS
     Dosage: 2.5 MG (2.5 MG, 1 D)
     Route: 048
  4. SELBEX (TEPRENONE) (FINE GRANULES) [Concomitant]
  5. MADOPAR (MADOPAR) [Concomitant]
  6. LEXOTAN (BROMAZEPAM) (TABLETS) [Concomitant]
  7. SYMMETREL (AMANTADINE HYDROCHLORIDE) (TABLETS) [Concomitant]
  8. LENDORMIN (BROTIZOLAM) (TABLETS) [Concomitant]
  9. GLICLAZIDE (TABLETS) [Concomitant]
  10. TERNELIN (TIZANIDINE HYDROCHLORIDE) (TABLETS) [Concomitant]

REACTIONS (4)
  - ALTERED STATE OF CONSCIOUSNESS [None]
  - DRUG INTERACTION [None]
  - DRUG LEVEL INCREASED [None]
  - HYPOGLYCAEMIA [None]
